FAERS Safety Report 12924482 (Version 3)
Quarter: 2016Q4

REPORT INFORMATION
  Report Type: Spontaneous
  Country: JP (occurrence: JP)
  Receive Date: 20161109
  Receipt Date: 20161128
  Transmission Date: 20170207
  Serious: Yes (Other)
  Sender: FDA-Public Use
  Company Number: PHJP2016JP031793

PATIENT
  Age: 36 Year
  Sex: Female
  Weight: 58 kg

DRUGS (8)
  1. BUPIVACAINE. [Suspect]
     Active Substance: BUPIVACAINE
     Indication: ANAESTHESIA PROCEDURE
     Dosage: 2.4 ML, UNK
     Route: 065
  2. HYDRALAZINE [Suspect]
     Active Substance: HYDRALAZINE HYDROCHLORIDE
     Indication: PRE-ECLAMPSIA
     Dosage: 30 MG, QD
     Route: 048
  3. MAGNESIUM SULFATE. [Suspect]
     Active Substance: MAGNESIUM SULFATE
     Indication: PROPHYLAXIS
     Dosage: 1 G/HR, UNK
     Route: 065
  4. FAMOTIDINE. [Suspect]
     Active Substance: FAMOTIDINE
     Indication: ANAESTHESIA PROCEDURE
     Dosage: 20 MG, UNK
     Route: 042
  5. FENTANYL. [Suspect]
     Active Substance: FENTANYL
     Indication: ANAESTHESIA PROCEDURE
     Dosage: 10 UG, UNK
     Route: 065
  6. FENTANYL. [Suspect]
     Active Substance: FENTANYL
     Indication: SEDATION
     Dosage: 140 UG, UNK
     Route: 065
  7. PROPOFOL. [Suspect]
     Active Substance: PROPOFOL
     Indication: SEDATION
     Dosage: 90 MG, UNK
     Route: 065
  8. MORPHINE HYDROCHLORIDE [Suspect]
     Active Substance: MORPHINE HYDROCHLORIDE
     Indication: ANAESTHESIA PROCEDURE
     Dosage: 0.15 MG, UNK
     Route: 065

REACTIONS (13)
  - Cerebral autosomal dominant arteriopathy with subcortical infarcts and leukoencephalopathy [Recovering/Resolving]
  - Somnolence [Recovering/Resolving]
  - Cerebellar infarction [Recovering/Resolving]
  - Hallucination [Recovering/Resolving]
  - Imaging procedure abnormal [Recovering/Resolving]
  - Dysarthria [Recovering/Resolving]
  - Disorientation [Recovering/Resolving]
  - Lacrimation increased [Recovering/Resolving]
  - Headache [Recovering/Resolving]
  - Premature delivery [Unknown]
  - Vomiting [Recovering/Resolving]
  - Maternal exposure during pregnancy [Unknown]
  - Agitation [Recovering/Resolving]
